FAERS Safety Report 15461916 (Version 5)
Quarter: 2018Q4

REPORT INFORMATION
  Report Type: Report from Study
  Country: BR (occurrence: BR)
  Receive Date: 20181003
  Receipt Date: 20181130
  Transmission Date: 20190204
  Serious: Yes (Other)
  Sender: FDA-Public Use
  Company Number: BR-B.I. PHARMACEUTICALS,INC./RIDGEFIELD-2018-BI-048431

PATIENT
  Age: 80 Year
  Sex: Male
  Weight: 73 kg

DRUGS (15)
  1. CAPTOPRIL. [Concomitant]
     Active Substance: CAPTOPRIL
     Indication: HYPERTENSION
     Route: 065
     Dates: start: 2009
  2. SPIRONOLACTONE. [Concomitant]
     Active Substance: SPIRONOLACTONE
     Indication: CARDIAC FAILURE CONGESTIVE
     Route: 048
     Dates: start: 20150204
  3. EMPAGLIFLOZIN [Suspect]
     Active Substance: EMPAGLIFLOZIN
     Route: 048
     Dates: start: 20181017
  4. WARFARIN [Concomitant]
     Active Substance: WARFARIN
     Indication: PRODUCT USED FOR UNKNOWN INDICATION
     Route: 065
     Dates: start: 2017
  5. CAPTOPRIL. [Concomitant]
     Active Substance: CAPTOPRIL
     Route: 048
     Dates: start: 201808
  6. SIMVASTATIN. [Concomitant]
     Active Substance: SIMVASTATIN
     Indication: DYSLIPIDAEMIA
     Route: 048
     Dates: start: 201010
  7. FUROSEMIDE. [Concomitant]
     Active Substance: FUROSEMIDE
     Route: 048
     Dates: start: 20180801
  8. CARVEDILOL. [Concomitant]
     Active Substance: CARVEDILOL
     Indication: CARDIAC FAILURE CONGESTIVE
     Route: 048
     Dates: start: 20150201
  9. METFORMIN [Concomitant]
     Active Substance: METFORMIN HYDROCHLORIDE
     Indication: TYPE 2 DIABETES MELLITUS
     Route: 048
     Dates: start: 201105
  10. MAREVAN [Concomitant]
     Active Substance: WARFARIN SODIUM
     Indication: ATRIAL FIBRILLATION
     Route: 048
     Dates: start: 201710
  11. FUROSEMIDE. [Concomitant]
     Active Substance: FUROSEMIDE
     Indication: CARDIAC FAILURE CONGESTIVE
     Route: 065
     Dates: start: 20150204
  12. ASA [Concomitant]
     Active Substance: ASPIRIN
     Indication: CORONARY ARTERY DISEASE
     Route: 048
     Dates: start: 20170412
  13. EMPAGLIFLOZIN [Suspect]
     Active Substance: EMPAGLIFLOZIN
     Indication: CARDIAC FAILURE
     Route: 048
     Dates: start: 20180620, end: 20180927
  14. DIPYRONE [Concomitant]
     Active Substance: DIPYRONE
     Indication: PAIN
     Route: 065
     Dates: start: 201803
  15. CARVEDILOL. [Concomitant]
     Active Substance: CARVEDILOL
     Route: 065
     Dates: start: 20150204

REACTIONS (1)
  - Hepatic function abnormal [Recovered/Resolved]

NARRATIVE: CASE EVENT DATE: 20180924
